FAERS Safety Report 14165119 (Version 1)
Quarter: 2017Q4

REPORT INFORMATION
  Report Type: Spontaneous
  Country: US (occurrence: None)
  Receive Date: 20171107
  Receipt Date: 20171107
  Transmission Date: 20180321
  Serious: Yes (Hospitalization, Congenital Anomaly)
  Sender: FDA-Public Use
  Company Number: None

PATIENT
  Age: 0 Day
  Sex: Male
  Weight: 2.99 kg

DRUGS (3)
  1. LAMICTAL [Concomitant]
     Active Substance: LAMOTRIGINE
  2. FEXAFENIDINE [Concomitant]
  3. LATUDA [Suspect]
     Active Substance: LURASIDONE HYDROCHLORIDE

REACTIONS (7)
  - Streptococcus test positive [None]
  - Maternal exposure during pregnancy [None]
  - Hyperbilirubinaemia neonatal [None]
  - Pneumoperitoneum [None]
  - Intestinal perforation [None]
  - Maternal drugs affecting foetus [None]
  - Neonatal respiratory distress syndrome [None]

NARRATIVE: CASE EVENT DATE: 20161021
